FAERS Safety Report 7619385-8 (Version None)
Quarter: 2011Q3

REPORT INFORMATION
  Report Type: 
  Country: None (occurrence: None)
  Receive Date: 20110719
  Receipt Date: 20110708
  Transmission Date: 20111222
  Serious: Yes (Hospitalization)
  Sender: FDA-Public Use
  Company Number: IE-BIOGENIDEC-2011BI023393

PATIENT
  Age: 44 Year
  Sex: Female

DRUGS (2)
  1. STEROIDS [Concomitant]
     Route: 042
  2. AVONEX [Suspect]
     Indication: PRODUCT USED FOR UNKNOWN INDICATION
     Route: 030
     Dates: start: 20110202, end: 20110530

REACTIONS (6)
  - ATAXIA [None]
  - DIZZINESS [None]
  - DEPRESSED MOOD [None]
  - PHOBIA [None]
  - FATIGUE [None]
  - INFLUENZA LIKE ILLNESS [None]
